FAERS Safety Report 10189968 (Version 1)
Quarter: 2014Q2

REPORT INFORMATION
  Report Type: Spontaneous
  Country: JP (occurrence: JP)
  Receive Date: 20140522
  Receipt Date: 20140522
  Transmission Date: 20141212
  Serious: Yes (Other)
  Sender: FDA-Public Use
  Company Number: JP-WATSON-2014-10182

PATIENT
  Age: 60 Year
  Sex: Male

DRUGS (15)
  1. CLOMIPRAMINE (UNKNOWN) [Suspect]
     Indication: DEPRESSION
     Dosage: 50 MG, DAILY
     Route: 065
     Dates: start: 2010
  2. CLOMIPRAMINE (UNKNOWN) [Suspect]
     Dosage: 150 MG, DAILY
     Route: 065
     Dates: start: 2010
  3. CLOMIPRAMINE (UNKNOWN) [Suspect]
     Dosage: 75 MG, DAILY
     Route: 065
     Dates: start: 2010
  4. LITHIUM CARBONATE (UNKNOWN) [Suspect]
     Indication: DEPRESSION
     Dosage: 400 MG, DAILY
     Route: 065
     Dates: start: 2010
  5. NORTRIPTYLINE HYDROCHLORIDE (WATSON LABORATORIES) [Suspect]
     Indication: DEPRESSION
     Dosage: 100 MG, DAILY
     Route: 065
     Dates: start: 2010
  6. NORTRIPTYLINE HYDROCHLORIDE (WATSON LABORATORIES) [Suspect]
     Dosage: 50 MG, DAILY
     Route: 065
     Dates: start: 2010
  7. RISPERIDONE [Concomitant]
     Indication: PRODUCT USED FOR UNKNOWN INDICATION
     Dosage: 1 MG, DAILY
     Route: 065
     Dates: start: 2010
  8. RISPERIDONE [Concomitant]
     Dosage: 0.5 MG, DAILY
     Route: 065
     Dates: start: 2010
  9. SULPIRIDE [Concomitant]
     Indication: PRODUCT USED FOR UNKNOWN INDICATION
     Dosage: 150 MG, DAILY
     Route: 065
     Dates: start: 2010
  10. CLONAZEPAM [Concomitant]
     Indication: PRODUCT USED FOR UNKNOWN INDICATION
     Dosage: 0.5 MG, DAILY
     Route: 065
     Dates: start: 2010
  11. CLONAZEPAM [Concomitant]
     Dosage: 1 MG, DAILY
     Route: 065
     Dates: start: 2010
  12. MIRTAZAPINE [Concomitant]
     Indication: PRODUCT USED FOR UNKNOWN INDICATION
     Dosage: 45 MG, DAILY
     Route: 065
     Dates: start: 2010
  13. MIRTAZAPINE [Concomitant]
     Dosage: 30 MG, DAILY
     Route: 065
     Dates: start: 2010
  14. FLUNITRAZEPAM [Concomitant]
     Indication: PRODUCT USED FOR UNKNOWN INDICATION
     Dosage: 2 MG, DAILY
     Route: 065
     Dates: start: 2010
  15. NITRAZEPAM [Concomitant]
     Indication: PRODUCT USED FOR UNKNOWN INDICATION
     Dosage: 10 MG, DAILY
     Route: 065
     Dates: start: 2010

REACTIONS (1)
  - Electrocardiogram abnormal [Recovered/Resolved]
